FAERS Safety Report 7020790-1 (Version None)
Quarter: 2010Q3

REPORT INFORMATION
  Report Type: 
  Country: None (occurrence: None)
  Receive Date: 20100929
  Receipt Date: 20100923
  Transmission Date: 20110219
  Serious: Yes (Life-Threatening)
  Sender: FDA-Public Use
  Company Number: FR-PFIZER INC-2010120690

PATIENT
  Age: 63 Year
  Sex: Male

DRUGS (5)
  1. SOLU-MEDROL [Suspect]
     Dosage: 75 MG, 1X/DAY
     Route: 042
     Dates: start: 20100805, end: 20100807
  2. MABTHERA [Suspect]
     Indication: CHRONIC LYMPHOCYTIC LEUKAEMIA
     Dosage: UNK MG, 1X/DAY
     Route: 042
     Dates: start: 20100805
  3. FLUDARABINE [Suspect]
     Indication: CHRONIC LYMPHOCYTIC LEUKAEMIA
     Dosage: 45 MG, 1X/DAY
     Route: 042
     Dates: start: 20100806, end: 20100807
  4. ACETAMINOPHEN [Suspect]
     Dosage: 2 DF, 1X/DAY
     Route: 048
     Dates: start: 20100805, end: 20100806
  5. ENDOXAN [Suspect]
     Indication: CHRONIC LYMPHOCYTIC LEUKAEMIA
     Dosage: 160 MG DAILY
     Route: 042
     Dates: start: 20100806

REACTIONS (1)
  - HAEMOLYSIS [None]
